FAERS Safety Report 6857775-1 (Version None)
Quarter: 2010Q3

REPORT INFORMATION
  Report Type: 
  Country: None (occurrence: None)
  Receive Date: 20100719
  Receipt Date: 20080125
  Transmission Date: 20110219
  Serious: No
  Sender: FDA-Public Use
  Company Number: US-PFIZER INC-2008009996

PATIENT
  Sex: Male
  Weight: 100 kg

DRUGS (4)
  1. CHANTIX [Suspect]
     Indication: SMOKING CESSATION THERAPY
     Dates: start: 20080101, end: 20080101
  2. ZYPREXA [Concomitant]
  3. DEPAKOTE [Concomitant]
  4. PROLIXIN [Concomitant]

REACTIONS (2)
  - AGITATION [None]
  - HEART RATE INCREASED [None]
